FAERS Safety Report 24576526 (Version 1)
Quarter: 2024Q4

REPORT INFORMATION
  Report Type: Spontaneous
  Country: US (occurrence: None)
  Receive Date: 20241103
  Receipt Date: 20241103
  Transmission Date: 20250115
  Serious: No
  Sender: Public
  Company Number: None

PATIENT
  Age: 53 Year
  Sex: Female
  Weight: 142.2 kg

DRUGS (7)
  1. SEMAGLUTIDE [Suspect]
     Active Substance: SEMAGLUTIDE
     Indication: Weight decreased
     Dosage: OTHER FREQUENCY : ONCE WEEKLY;?
     Route: 058
     Dates: start: 20240928, end: 20241103
  2. TRUXIMA [Concomitant]
     Active Substance: RITUXIMAB-ABBS
  3. METHOTREXATE [Concomitant]
     Active Substance: METHOTREXATE
  4. FOLIC ACID [Concomitant]
     Active Substance: FOLIC ACID
  5. sulfasalizine [Concomitant]
  6. PANTOPRAZOLE SODIUM [Concomitant]
     Active Substance: PANTOPRAZOLE SODIUM
  7. CITALOPRAM [Concomitant]
     Active Substance: CITALOPRAM

REACTIONS (4)
  - Accidental overdose [None]
  - Syringe issue [None]
  - Product communication issue [None]
  - Product label confusion [None]

NARRATIVE: CASE EVENT DATE: 20241103
